FAERS Safety Report 9097586 (Version 1)
Quarter: 2013Q1

REPORT INFORMATION
  Report Type: Spontaneous
  Country: GB (occurrence: GB)
  Receive Date: 20130212
  Receipt Date: 20130212
  Transmission Date: 20140127
  Serious: Yes (Hospitalization)
  Sender: FDA-Public Use
  Company Number: GB-PFIZER INC-2013050911

PATIENT
  Sex: Female

DRUGS (1)
  1. LYRICA [Suspect]
     Indication: GENERALISED ANXIETY DISORDER

REACTIONS (1)
  - Convulsion [Unknown]
